FAERS Safety Report 8074697-1 (Version None)
Quarter: 2012Q1

REPORT INFORMATION
  Report Type: 
  Country: None (occurrence: None)
  Receive Date: 20120126
  Receipt Date: 20120123
  Transmission Date: 20120608
  Serious: Yes (Hospitalization)
  Sender: FDA-Public Use
  Company Number: NL-ROCHE-1032624

PATIENT
  Sex: Female

DRUGS (7)
  1. VALITRAN [Concomitant]
  2. PLATINUM COMPOUND NOS [Suspect]
     Indication: GASTRIC CANCER
     Dosage: RECENT DOSE ON 09 JAN 2012
     Route: 042
     Dates: start: 20111128
  3. ACENOCOUMAROL [Concomitant]
  4. EPIRUBICIN HYDROCHLORIDE [Suspect]
     Indication: GASTRIC CANCER
     Dosage: RECENT DOSE ON 09 JAN 2012
     Route: 042
     Dates: start: 20111128
  5. ESOMEPRAZOLE SODIUM [Concomitant]
  6. FRAGMIN [Concomitant]
     Dates: start: 20120116, end: 20120120
  7. XELODA [Suspect]
     Indication: GASTRIC CANCER
     Dosage: TTD: 2X100, RECENT DOSE ON 09 JAN 2012
     Route: 048
     Dates: start: 20111128

REACTIONS (1)
  - EMBOLISM ARTERIAL [None]
